FAERS Safety Report 9188855 (Version 1)
Quarter: 2013Q1

REPORT INFORMATION
  Report Type: Spontaneous
  Country: DK (occurrence: DK)
  Receive Date: 20130326
  Receipt Date: 20130326
  Transmission Date: 20140127
  Serious: Yes (Other)
  Sender: FDA-Public Use
  Company Number: DK-AMGEN-DNKSP2011070284

PATIENT
  Age: 69 Year
  Sex: Male

DRUGS (2)
  1. NEUPOGEN [Suspect]
     Indication: PRODUCT USED FOR UNKNOWN INDICATION
     Dosage: UNK
  2. SULPHAMETHOXAZOLE [Concomitant]
     Dosage: UNK

REACTIONS (4)
  - Deep vein thrombosis [Unknown]
  - Diabetes mellitus [Unknown]
  - Klebsiella infection [Unknown]
  - Pyrexia [Unknown]
